FAERS Safety Report 7910630-8 (Version None)
Quarter: 2011Q4

REPORT INFORMATION
  Report Type: 
  Country: None (occurrence: None)
  Receive Date: 20111111
  Receipt Date: 20111109
  Transmission Date: 20120403
  Serious: Yes (Other)
  Sender: FDA-Public Use
  Company Number: US-AMGEN-USASP2011056266

PATIENT
  Sex: Female
  Weight: 58.503 kg

DRUGS (6)
  1. METOCHLOPRAMIDE [Concomitant]
     Dosage: 10 MG, UNK
     Route: 048
  2. POTASSIUM CHLORIDE [Concomitant]
     Indication: BLOOD POTASSIUM DECREASED
     Dosage: 20 MUG, UNK
     Route: 048
  3. NPLATE [Suspect]
     Indication: IDIOPATHIC THROMBOCYTOPENIC PURPURA
     Dosage: 500 MUG, UNK
     Route: 058
     Dates: start: 20110426, end: 20110713
  4. LORTAB [Concomitant]
     Indication: PAIN
     Dosage: UNK UNK, PRN
     Route: 048
  5. OMEPRAZOLE [Concomitant]
     Indication: GASTROOESOPHAGEAL REFLUX DISEASE
     Dosage: 20 MG, QD
     Route: 048
  6. MORPHINE [Concomitant]
     Indication: PAIN
     Route: 048

REACTIONS (1)
  - DEEP VEIN THROMBOSIS [None]
